FAERS Safety Report 7865611-X (Version None)
Quarter: 2011Q4

REPORT INFORMATION
  Report Type: 
  Country: None (occurrence: None)
  Receive Date: 20111028
  Receipt Date: 20110124
  Transmission Date: 20120403
  Serious: No
  Sender: FDA-Public Use
  Company Number: US-GLAXOSMITHKLINE-A0908619A

PATIENT
  Sex: Female

DRUGS (4)
  1. THEOPHYLLINE [Concomitant]
  2. ADVAIR DISKUS 100/50 [Suspect]
     Indication: ASTHMA
     Dosage: 1PUFF TWICE PER DAY
     Route: 055
  3. SINGULAIR [Concomitant]
  4. ALBUTEROL [Concomitant]

REACTIONS (7)
  - DYSPHONIA [None]
  - CANDIDIASIS [None]
  - COUGH [None]
  - DRUG INEFFECTIVE [None]
  - OSTEOPOROSIS [None]
  - THROAT IRRITATION [None]
  - SECRETION DISCHARGE [None]
